FAERS Safety Report 6405981-2 (Version None)
Quarter: 2009Q4

REPORT INFORMATION
  Report Type: 
  Country: None (occurrence: None)
  Receive Date: 20091019
  Receipt Date: 20091007
  Transmission Date: 20100525
  Serious: Yes (Hospitalization)
  Sender: FDA-Public Use
  Company Number: US-BIOGENIDEC-2007BI007821

PATIENT
  Age: 42 Year
  Sex: Female
  Weight: 60 kg

DRUGS (5)
  1. AVONEX [Suspect]
     Indication: MULTIPLE SCLEROSIS
     Route: 030
     Dates: start: 19970217, end: 20060101
  2. AVONEX [Suspect]
     Route: 030
     Dates: start: 20060101
  3. DITROPAN [Concomitant]
     Indication: DRUG USE FOR UNKNOWN INDICATION
  4. AMANTADINE HCL [Concomitant]
     Indication: DRUG USE FOR UNKNOWN INDICATION
  5. TRILEPTAL [Concomitant]
     Indication: CONVULSION

REACTIONS (10)
  - ASTHENIA [None]
  - CONVULSION [None]
  - DISEASE PROGRESSION [None]
  - ELECTROENCEPHALOGRAM ABNORMAL [None]
  - EPILEPSY [None]
  - HEADACHE [None]
  - MEMORY IMPAIRMENT [None]
  - MULTIPLE SCLEROSIS [None]
  - NUCLEAR MAGNETIC RESONANCE IMAGING ABNORMAL [None]
  - POLLAKIURIA [None]
